FAERS Safety Report 10994588 (Version 1)
Quarter: 2015Q2

REPORT INFORMATION
  Report Type: Spontaneous
  Country: US (occurrence: None)
  Receive Date: 20150406
  Receipt Date: 20150406
  Transmission Date: 20150821
  Serious: Yes (Disabling)
  Sender: FDA-Public Use
  Company Number: None

PATIENT
  Age: 65 Year
  Sex: Female
  Weight: 71.67 kg

DRUGS (9)
  1. CHLORZOXAZONE. [Concomitant]
     Active Substance: CHLORZOXAZONE
  2. TYLENOL [Concomitant]
     Active Substance: ACETAMINOPHEN
  3. NEXIUM [Concomitant]
     Active Substance: ESOMEPRAZOLE MAGNESIUM
  4. NEBULIZER [Concomitant]
     Active Substance: UNSPECIFIED INGREDIENT
  5. SYMBICORT [Concomitant]
     Active Substance: BUDESONIDE\FORMOTEROL FUMARATE DIHYDRATE
  6. ALBUTERAL [Concomitant]
     Active Substance: ALBUTEROL
  7. CENTRUM SILVER [Concomitant]
     Active Substance: VITAMINS
  8. CELECOXIB 200 MG TEVA USA [Suspect]
     Active Substance: CELECOXIB
     Indication: OSTEOARTHRITIS
     Dosage: 1 CAPSULE
     Route: 048
  9. SPIRIVA [Concomitant]
     Active Substance: TIOTROPIUM BROMIDE MONOHYDRATE

REACTIONS (3)
  - Product substitution issue [None]
  - Product size issue [None]
  - Drug ineffective [None]

NARRATIVE: CASE EVENT DATE: 20150403
